FAERS Safety Report 5513857-8 (Version None)
Quarter: 2007Q4

REPORT INFORMATION
  Report Type: 
  Country: None (occurrence: None)
  Receive Date: 20071105
  Receipt Date: 20070910
  Transmission Date: 20080405
  Serious: Yes (Hospitalization)
  Sender: FDA-Public Use
  Company Number: 2007SP003134

PATIENT
  Age: 72 Year
  Sex: Male

DRUGS (14)
  1. BROVANA [Suspect]
     Indication: CHRONIC OBSTRUCTIVE PULMONARY DISEASE
     Dosage: 15 UG/2ML;BID;INHALATION
     Route: 055
     Dates: start: 20070101, end: 20070901
  2. OXYGEN [Concomitant]
  3. PULMICORT [Concomitant]
  4. ACETYLCYSTEINE [Concomitant]
  5. PREDNISONE [Concomitant]
  6. TAMSULOSIN HCL [Concomitant]
  7. ALPRAZOLAM [Concomitant]
  8. FORMOTEROL FUMARATE [Concomitant]
  9. XOPENEX [Concomitant]
  10. ALBUTEROL W/IPRATROPIUM [Concomitant]
  11. DILTIAZEM [Concomitant]
  12. M.V.I. [Concomitant]
  13. PNEUMOVAX 23 [Concomitant]
  14. INFLUENZA VACCINE [Concomitant]

REACTIONS (1)
  - DYSPNOEA [None]
